FAERS Safety Report 23799292 (Version 1)
Quarter: 2024Q2

REPORT INFORMATION
  Report Type: Spontaneous
  Country: US (occurrence: None)
  Receive Date: 20240428
  Receipt Date: 20240428
  Transmission Date: 20240716
  Serious: Yes (Hospitalization)
  Sender: FDA-Public Use
  Company Number: None

PATIENT
  Age: 73 Year
  Sex: Male

DRUGS (1)
  1. LOSARTAN POTASSIUM [Suspect]
     Active Substance: LOSARTAN POTASSIUM
     Indication: Product use in unapproved indication
     Dosage: FREQUENCY : DAILY;?
     Route: 048
     Dates: start: 20230110, end: 20230422

REACTIONS (1)
  - Angioedema [None]

NARRATIVE: CASE EVENT DATE: 20230424
